FAERS Safety Report 20372341 (Version 2)
Quarter: 2022Q1

REPORT INFORMATION
  Report Type: Spontaneous
  Country: US (occurrence: None)
  Receive Date: 20220124
  Receipt Date: 20220223
  Transmission Date: 20220423
  Serious: No
  Sender: FDA-Public Use
  Company Number: 2022A030952

PATIENT
  Age: 81 Year
  Sex: Female
  Weight: 56.7 kg

DRUGS (2)
  1. BREZTRI [Suspect]
     Active Substance: BUDESONIDE\FORMOTEROL\GLYCOPYRROLATE
     Indication: Chronic obstructive pulmonary disease
     Dosage: 160/7.2/5.0?G,2 PUFFS, TWO TIMES A DAY
     Route: 055
     Dates: start: 2021
  2. SYMBICORT [Suspect]
     Active Substance: BUDESONIDE\FORMOTEROL FUMARATE DIHYDRATE
     Indication: Chronic obstructive pulmonary disease
     Dosage: UNKNOWN
     Route: 055

REACTIONS (5)
  - Speech disorder [Recovering/Resolving]
  - Incorrect dose administered by device [Not Recovered/Not Resolved]
  - Wrong technique in device usage process [Recovered/Resolved]
  - Device delivery system issue [Unknown]
  - Device malfunction [Unknown]

NARRATIVE: CASE EVENT DATE: 20210101
